FAERS Safety Report 9026003 (Version 1)
Quarter: 2012Q4

REPORT INFORMATION
  Report Type: Spontaneous
  Country: US (occurrence: None)
  Receive Date: 20121214
  Receipt Date: 20121214
  Transmission Date: 20130627
  Serious: No
  Sender: FDA-Public Use
  Company Number: None

PATIENT
  Age: 11 Year
  Sex: Male
  Weight: 71.22 kg

DRUGS (2)
  1. RITALIN LA [Suspect]
     Route: 048
     Dates: start: 20101201, end: 20110222
  2. RITALIN LA [Suspect]
     Route: 048

REACTIONS (3)
  - Product substitution issue [None]
  - Affective disorder [None]
  - Abnormal behaviour [None]
